FAERS Safety Report 17900260 (Version 1)
Quarter: 2020Q2

REPORT INFORMATION
  Report Type: Spontaneous
  Country: US (occurrence: US)
  Receive Date: 20200616
  Receipt Date: 20200616
  Transmission Date: 20200714
  Serious: No
  Sender: FDA-Public Use
  Company Number: US-PFIZER INC-2020231205

PATIENT
  Sex: Female

DRUGS (3)
  1. LYRICA [Suspect]
     Active Substance: PREGABALIN
     Dosage: 50 MG (TOOK ONLY 50 MG AT NIGHT)
     Dates: start: 20200611
  2. LYRICA [Suspect]
     Active Substance: PREGABALIN
     Dosage: 150 MG, DAILY (SOMETIMES SHE TAKES 100 MG AT NIGHT AND 50 MG IN THE MORNING)
  3. LYRICA [Suspect]
     Active Substance: PREGABALIN
     Indication: FIBROMYALGIA
     Dosage: 50 MG, 3X/DAY
     Dates: start: 20200601

REACTIONS (10)
  - Neuralgia [Unknown]
  - Gait disturbance [Unknown]
  - Myalgia [Unknown]
  - Breast swelling [Unknown]
  - Arthralgia [Unknown]
  - Abdominal distension [Unknown]
  - Somnolence [Unknown]
  - Intentional product misuse [Unknown]
  - Pain [Unknown]
  - Hyperphagia [Unknown]

NARRATIVE: CASE EVENT DATE: 20200611
